FAERS Safety Report 18883180 (Version 1)
Quarter: 2021Q1

REPORT INFORMATION
  Report Type: Spontaneous
  Country: DE (occurrence: DE)
  Receive Date: 20210212
  Receipt Date: 20210212
  Transmission Date: 20210420
  Serious: Yes (Life-Threatening, Hospitalization, Other)
  Sender: FDA-Public Use
  Company Number: DE-TEVA-2021-DE-1878521

PATIENT
  Age: 26 Month
  Sex: Female
  Weight: 10 kg

DRUGS (1)
  1. METHYLPHENIDAT [Suspect]
     Active Substance: METHYLPHENIDATE
     Indication: ACCIDENTAL EXPOSURE TO PRODUCT BY CHILD
     Dosage: 54MILLIGRAM
     Route: 048
     Dates: start: 20200620, end: 20200620

REACTIONS (7)
  - Dystonia [Recovered/Resolved]
  - Dyskinesia [Recovered/Resolved]
  - Product administration error [Recovered/Resolved]
  - Tachycardia [Recovered/Resolved]
  - Accidental exposure to product by child [Recovered/Resolved]
  - Grimacing [Recovered/Resolved]
  - Restlessness [Recovered/Resolved]

NARRATIVE: CASE EVENT DATE: 20200620
